FAERS Safety Report 21240308 (Version 1)
Quarter: 2022Q3

REPORT INFORMATION
  Report Type: Spontaneous
  Country: US (occurrence: None)
  Receive Date: 20220821
  Receipt Date: 20220821
  Transmission Date: 20221027
  Serious: Yes (Other)
  Sender: FDA-Public Use
  Company Number: None

PATIENT
  Age: 68 Year
  Sex: Female
  Weight: 78.02 kg

DRUGS (13)
  1. CAPECITABINE [Suspect]
     Active Substance: CAPECITABINE
     Indication: Breast cancer
     Dosage: 1000 MG BID 14ON7OFF ORAL
     Route: 048
  2. CARAFATIE [Concomitant]
  3. CEFTRIAXONE [Concomitant]
     Active Substance: CEFTRIAXONE
  4. CHOLCALCIFEROL [Concomitant]
  5. DUKE SOLUTION [Concomitant]
  6. FERROUS SULFATE [Concomitant]
     Active Substance: FERROUS SULFATE
  7. KLOR-CON [Concomitant]
     Active Substance: POTASSIUM CHLORIDE
  8. VITAMINS [Concomitant]
     Active Substance: VITAMINS
  9. OMEPRAZOLE [Concomitant]
     Active Substance: OMEPRAZOLE
  10. PROMETHAZINE [Concomitant]
     Active Substance: PROMETHAZINE HYDROCHLORIDE
  11. SUCRALFATE [Concomitant]
     Active Substance: SUCRALFATE
  12. TESSALON [Concomitant]
     Active Substance: BENZONATATE
  13. ZOFRAN [Concomitant]
     Active Substance: ONDANSETRON HYDROCHLORIDE

REACTIONS (1)
  - Brain neoplasm [None]
